FAERS Safety Report 7002667-0 (Version None)
Quarter: 2010Q3

REPORT INFORMATION
  Report Type: 
  Country: None (occurrence: None)
  Receive Date: 20100920
  Receipt Date: 20100908
  Transmission Date: 20110219
  Serious: Yes (Other)
  Sender: FDA-Public Use
  Company Number: US-ELI_LILLY_AND_COMPANY-US201009002974

PATIENT
  Age: 71 Year
  Sex: Female

DRUGS (6)
  1. FORTEO [Suspect]
     Indication: OSTEOPOROSIS
     Dosage: 20 UG, DAILY (1/D)
     Route: 058
  2. URSODIOL [Concomitant]
  3. VALIUM [Concomitant]
  4. DIFLUNISAL [Concomitant]
  5. AMLODIPINE [Concomitant]
  6. VITAMIN D [Concomitant]

REACTIONS (1)
  - LUNG ADENOCARCINOMA [None]
